FAERS Safety Report 25790419 (Version 1)
Quarter: 2025Q3

REPORT INFORMATION
  Report Type: Spontaneous
  Country: EU (occurrence: EU)
  Receive Date: 20250911
  Receipt Date: 20250911
  Transmission Date: 20251021
  Serious: Yes (Other)
  Sender: RANBAXY
  Company Number: EU-AFSSAPS-RN2025000471

PATIENT
  Age: 23 Year
  Sex: Male
  Weight: 62 kg

DRUGS (1)
  1. VENLAFAXINE [Suspect]
     Active Substance: VENLAFAXINE HYDROCHLORIDE
     Indication: Depression
     Route: 048
     Dates: start: 20231023

REACTIONS (1)
  - Flatulence [Not Recovered/Not Resolved]
